FAERS Safety Report 5519500-6 (Version None)
Quarter: 2007Q4

REPORT INFORMATION
  Report Type: 
  Country: None (occurrence: None)
  Receive Date: 20071116
  Receipt Date: 20071105
  Transmission Date: 20080405
  Serious: Yes (Hospitalization)
  Sender: FDA-Public Use
  Company Number: US-ELI_LILLY_AND_COMPANY-US200711002644

PATIENT

DRUGS (7)
  1. HUMALOG [Suspect]
     Dosage: UNK, UNK
     Route: 063
     Dates: start: 20070601
  2. HUMULIN N [Suspect]
     Dosage: UNK, UNK
     Route: 064
     Dates: start: 20060101, end: 20070508
  3. HUMULIN N [Suspect]
     Route: 063
     Dates: start: 20070508, end: 20070601
  4. HUMULIN R [Suspect]
     Dosage: UNK, UNK
     Route: 064
     Dates: start: 20060101, end: 20070508
  5. HUMULIN R [Suspect]
     Route: 063
     Dates: start: 20070508, end: 20070601
  6. LANTUS [Concomitant]
     Dosage: UNK, UNK
     Dates: start: 20070601
  7. PRENATAL VITAMINS /01549301/ [Concomitant]

REACTIONS (7)
  - CONTUSION [None]
  - DRUG EXPOSURE DURING PREGNANCY [None]
  - DRUG EXPOSURE VIA BREAST MILK [None]
  - HAEMATEMESIS [None]
  - IRRITABILITY [None]
  - SCREAMING [None]
  - VOMITING [None]
